FAERS Safety Report 6390100-1 (Version None)
Quarter: 2009Q4

REPORT INFORMATION
  Report Type: 
  Country: None (occurrence: None)
  Receive Date: 20091006
  Receipt Date: 20090927
  Transmission Date: 20100525
  Serious: Yes (Other)
  Sender: FDA-Public Use
  Company Number: US-JNJFOC-20090908451

PATIENT
  Sex: Female

DRUGS (1)
  1. CHILDREN'S TYLENOL PLUS COLD GRAPE [Suspect]
     Indication: TOOTH REPAIR
     Route: 065

REACTIONS (5)
  - COUGH [None]
  - LACRIMATION INCREASED [None]
  - OCULAR HYPERAEMIA [None]
  - ORAL PAIN [None]
  - TRANSMISSION OF AN INFECTIOUS AGENT VIA A MEDICINAL PRODUCT [None]
